FAERS Safety Report 4332014-4 (Version None)
Quarter: 2004Q2

REPORT INFORMATION
  Report Type: 
  Country: None (occurrence: None)
  Receive Date: 20040405
  Receipt Date: 20040128
  Transmission Date: 20050107
  Serious: No
  Sender: FDA-Public Use
  Company Number: US-GLAXOSMITHKLINE-A0495342A

PATIENT
  Age: 71 Year
  Sex: Female

DRUGS (6)
  1. SEREVENT [Suspect]
     Indication: ASTHMA
     Dosage: 1PUFF TWICE PER DAY
     Route: 055
     Dates: start: 20030801
  2. PULMICORT [Concomitant]
  3. RANITIDINE [Concomitant]
  4. HYOSCYAMINE [Concomitant]
  5. VERAPAMIL [Concomitant]
  6. DESIPRAMINE HCL [Concomitant]

REACTIONS (2)
  - PEAK EXPIRATORY FLOW RATE DECREASED [None]
  - PHARMACEUTICAL PRODUCT COMPLAINT [None]
